FAERS Safety Report 12698731 (Version 5)
Quarter: 2016Q4

REPORT INFORMATION
  Report Type: Spontaneous
  Country: JP (occurrence: JP)
  Receive Date: 20160830
  Receipt Date: 20161121
  Transmission Date: 20170207
  Serious: Yes (Other)
  Sender: FDA-Public Use
  Company Number: JP-GLAXOSMITHKLINE-JP2016JPN123605

PATIENT
  Age: 54 Year
  Sex: Female
  Weight: 39 kg

DRUGS (2)
  1. ZEFIX [Suspect]
     Active Substance: LAMIVUDINE
     Indication: HEPATITIS B
     Dosage: UNK
     Route: 048
  2. HEPSERA [Suspect]
     Active Substance: ADEFOVIR DIPIVOXIL
     Indication: HEPATITIS B
     Dosage: 10 MG, QD
     Route: 048
     Dates: end: 20160712

REACTIONS (6)
  - Fracture [Recovering/Resolving]
  - Musculoskeletal chest pain [Recovering/Resolving]
  - Fanconi syndrome acquired [Recovering/Resolving]
  - Back pain [Recovering/Resolving]
  - Blood phosphorus decreased [Recovered/Resolved]
  - Renal impairment [Recovering/Resolving]

NARRATIVE: CASE EVENT DATE: 20160801
